FAERS Safety Report 14830122 (Version 13)
Quarter: 2019Q1

REPORT INFORMATION
  Report Type: Report from Study
  Country: US (occurrence: US)
  Receive Date: 20180430
  Receipt Date: 20190311
  Transmission Date: 20190417
  Serious: Yes (Hospitalization)
  Sender: FDA-Public Use
  Company Number: US-ACTELION-A-NJ2017-163740

PATIENT
  Age: 55 Year
  Sex: Female
  Weight: 86.17 kg

DRUGS (5)
  1. ORENITRAM [Suspect]
     Active Substance: TREPROSTINIL
     Dosage: 0.375 MG, BID
     Route: 065
  2. OPSUMIT [Suspect]
     Active Substance: MACITENTAN
     Indication: PULMONARY ARTERIAL HYPERTENSION
     Dosage: 10 MG, QD
     Route: 048
  3. TYLENOL [Concomitant]
     Active Substance: ACETAMINOPHEN
     Indication: HEADACHE
  4. ORENITRAM [Suspect]
     Active Substance: TREPROSTINIL
     Indication: PRODUCT USED FOR UNKNOWN INDICATION
     Dosage: 0.375 MG, UNK
     Route: 065
  5. FUROSEMIDE. [Concomitant]
     Active Substance: FUROSEMIDE
     Dosage: 20 MG, QD

REACTIONS (39)
  - Respiratory failure [Unknown]
  - Pain in extremity [Unknown]
  - Cough [Unknown]
  - Dyspnoea at rest [Unknown]
  - Condition aggravated [Unknown]
  - Localised infection [Unknown]
  - Nausea [Unknown]
  - Chronic obstructive pulmonary disease [Unknown]
  - Fatigue [Not Recovered/Not Resolved]
  - Tremor [Unknown]
  - Renal impairment [Unknown]
  - Staphylococcal infection [Unknown]
  - Oxygen therapy [Unknown]
  - Oxygen saturation decreased [Unknown]
  - Insomnia [Unknown]
  - Unevaluable event [Unknown]
  - Peripheral swelling [Unknown]
  - Chest discomfort [Recovering/Resolving]
  - Mood altered [Unknown]
  - Migraine [Unknown]
  - Headache [Unknown]
  - Heart rate irregular [Unknown]
  - Malaise [Unknown]
  - Dyspnoea [Not Recovered/Not Resolved]
  - Dyspnoea exertional [Not Recovered/Not Resolved]
  - Oedema [Unknown]
  - Pain [Unknown]
  - Optic nerve disorder [Unknown]
  - Influenza [Unknown]
  - Nervousness [Unknown]
  - Feeling abnormal [Unknown]
  - Anger [Unknown]
  - Depressed mood [Unknown]
  - Swelling [Unknown]
  - Eye pain [Unknown]
  - Pneumonia [Not Recovered/Not Resolved]
  - Restlessness [Unknown]
  - Fluid retention [Unknown]
  - Product dose omission [Unknown]

NARRATIVE: CASE EVENT DATE: 20180707
